FAERS Safety Report 5939490-1 (Version None)
Quarter: 2008Q4

REPORT INFORMATION
  Report Type: 
  Country: None (occurrence: None)
  Receive Date: 20081029
  Receipt Date: 20081017
  Transmission Date: 20090506
  Serious: Yes (Hospitalization)
  Sender: FDA-Public Use
  Company Number: GXKR2008JP09941

PATIENT
  Age: 43 Year
  Sex: Female

DRUGS (4)
  1. RIBAVIRIN [Suspect]
     Indication: ANTIVIRAL PROPHYLAXIS
     Dosage: 800 MG/DAY
  2. INTRON A [Suspect]
     Indication: ANTIVIRAL PROPHYLAXIS
     Dosage: 80 MG WEEKLY
  3. TACROLIMUS (TARCROLIMUS) UNKNOWN [Suspect]
     Indication: IMMUNOSUPPRESSION
  4. STEROIDS NOS (NO INGREDIENTS/SUBSTANCES) [Suspect]
     Indication: IMMUNOSUPPRESSANT DRUG THERAPY

REACTIONS (4)
  - DRUG LEVEL INCREASED [None]
  - DRUG TOXICITY [None]
  - HAEMORRHAGIC CEREBRAL INFARCTION [None]
  - THROMBOTIC MICROANGIOPATHY [None]
